FAERS Safety Report 8560705 (Version 7)
Quarter: 2012Q4

REPORT INFORMATION
  Report Type: 
  Country: US (occurrence: US)
  Receive Date: 20120514
  Receipt Date: 20121126
  Transmission Date: 20130627
  Serious: Yes (Hospitalization, Other)
  Sender: FDA-Public Use
  Company Number: US-MERCK-1205USA01762

PATIENT

DRUGS (5)
  1. FOSAMAX [Suspect]
     Indication: OSTEOPOROSIS PROPHYLAXIS
     Dosage: 10 mg, UNK
     Route: 048
  2. FOSAMAX [Suspect]
     Dosage: 70 mg, UNK
     Route: 048
     Dates: start: 20010414
  3. FOSAMAX [Suspect]
     Route: 048
  4. FOSAMAX PLUS D [Suspect]
     Indication: OSTEOPOROSIS
     Dosage: UNK
     Route: 048
     Dates: start: 20060227
  5. ALENDRONATE SODIUM [Suspect]
     Dosage: 70 mg, UNK

REACTIONS (36)
  - Femur fracture [Unknown]
  - Hip arthroplasty [Unknown]
  - Fracture reduction [Unknown]
  - Knee arthroplasty [Unknown]
  - Atrial fibrillation [Recovered/Resolved]
  - Haemorrhagic anaemia [Not Recovered/Not Resolved]
  - Pulmonary embolism [Unknown]
  - Deep vein thrombosis [Recovering/Resolving]
  - Pulmonary hypertension [Unknown]
  - Heparin-induced thrombocytopenia [Unknown]
  - Adverse drug reaction [Unknown]
  - Vena cava filter insertion [Unknown]
  - Ankle fracture [Unknown]
  - Low turnover osteopathy [Unknown]
  - Device related infection [Unknown]
  - Bursitis [Unknown]
  - Medical device removal [Unknown]
  - Varicose vein [Unknown]
  - Weight loss poor [Unknown]
  - Dyslipidaemia [Unknown]
  - Back pain [Unknown]
  - Arthralgia [Unknown]
  - Vitamin D deficiency [Unknown]
  - Osteoarthritis [Unknown]
  - Osteoarthritis [Unknown]
  - Anaphylactic reaction [Unknown]
  - Drug hypersensitivity [Unknown]
  - Nausea [Unknown]
  - Hypersensitivity [Unknown]
  - Incisional drainage [Unknown]
  - Hip arthroplasty [Unknown]
  - Incision site infection [Unknown]
  - Hip arthroplasty [Unknown]
  - Osteopenia [Unknown]
  - Scoliosis [Unknown]
  - Body height decreased [Unknown]
